FAERS Safety Report 10240039 (Version 1)
Quarter: 2014Q2

REPORT INFORMATION
  Report Type: Spontaneous
  Country: IE (occurrence: FR)
  Receive Date: 20140617
  Receipt Date: 20140617
  Transmission Date: 20141212
  Serious: Yes (Hospitalization)
  Sender: FDA-Public Use
  Company Number: 2014SP003195

PATIENT
  Age: 43 Year
  Sex: Male

DRUGS (16)
  1. FLUOROURACIL [Suspect]
     Indication: PRODUCT USED FOR UNKNOWN INDICATION
     Route: 042
     Dates: start: 201403
  2. OXALIPLATIN [Suspect]
     Indication: PRODUCT USED FOR UNKNOWN INDICATION
     Route: 042
     Dates: start: 201403
  3. FOLINIC ACID [Suspect]
     Indication: PRODUCT USED FOR UNKNOWN INDICATION
     Route: 042
     Dates: start: 201403
  4. ONDANSETRON HYDROCHLORIDE [Suspect]
     Indication: PREMEDICATION
     Dates: start: 20140401, end: 20140401
  5. CETUXIMAB [Suspect]
     Indication: PRODUCT USED FOR UNKNOWN INDICATION
     Route: 042
     Dates: start: 201403
  6. APREPITANT [Suspect]
     Indication: PREMEDICATION
     Route: 048
     Dates: start: 20140401, end: 20140401
  7. METOCLOPRAMIDE HYDROCHLORIDE [Suspect]
     Indication: PREMEDICATION
     Route: 048
     Dates: start: 20140401, end: 20140401
  8. DEXCHLORPHENIRAMINE MALEATE [Suspect]
     Indication: HYPERSENSITIVITY
     Route: 048
     Dates: start: 20140401, end: 20140401
  9. CLORAZEPATE DIPOTASSIUM [Suspect]
     Indication: PREMEDICATION
     Dates: start: 20140401, end: 20140401
  10. LOPERAMIDE HYDROCHLORIDE [Concomitant]
  11. DIOSMECTITE [Concomitant]
  12. OXYCODONE HYDROCHLORIDE [Concomitant]
  13. LIDOCAINE [Concomitant]
  14. PARACETAMOL [Concomitant]
  15. ALPRAZOLAM [Concomitant]
  16. ZOLPIDEM TARTRATE [Concomitant]

REACTIONS (14)
  - Thrombocytopenia [Recovered/Resolved]
  - Jaundice [Recovered/Resolved]
  - Chills [Recovered/Resolved]
  - Malaise [Unknown]
  - Vomiting [Recovering/Resolving]
  - Nausea [Recovering/Resolving]
  - Blood bilirubin increased [Recovering/Resolving]
  - Leukopenia [Recovered/Resolved]
  - Serum ferritin increased [Recovering/Resolving]
  - Histiocytosis haematophagic [Recovered/Resolved]
  - Hypersensitivity [Recovering/Resolving]
  - Erythema [Recovering/Resolving]
  - Pruritus [Recovering/Resolving]
  - Abdominal pain [Recovering/Resolving]
